FAERS Safety Report 20680053 (Version 2)
Quarter: 2022Q3

REPORT INFORMATION
  Report Type: Spontaneous
  Country: IT (occurrence: IT)
  Receive Date: 20220406
  Receipt Date: 20220720
  Transmission Date: 20221027
  Serious: Yes (Other)
  Sender: FDA-Public Use
  Company Number: IT-TEVA-2022-IT-2020130

PATIENT
  Sex: Female

DRUGS (8)
  1. PANTOPRAZOLE [Suspect]
     Active Substance: PANTOPRAZOLE
     Dosage: UNK
     Route: 065
  2. LAMICTAL [Suspect]
     Active Substance: LAMOTRIGINE
     Indication: Epilepsy
     Dosage: UNK
     Route: 065
  3. PHENOBARBITAL SODIUM [Concomitant]
     Active Substance: PHENOBARBITAL SODIUM
     Indication: Epilepsy
     Dosage: UNK
     Route: 065
  4. VALPROATE SODIUM [Concomitant]
     Active Substance: VALPROATE SODIUM
     Indication: Epilepsy
     Dosage: UNK
     Route: 065
  5. HYDROCHLOROTHIAZIDE\RAMIPRIL [Concomitant]
     Active Substance: HYDROCHLOROTHIAZIDE\RAMIPRIL
     Dosage: 1 DOSAGE FORM, QD
  6. CIPRALEX [Concomitant]
     Active Substance: ESCITALOPRAM OXALATE
     Dosage: 20 MILLIGRAM, QD
  7. TIROSINT [Concomitant]
     Active Substance: LEVOTHYROXINE SODIUM
     Dosage: 1 DOSAGE FORM, QD
  8. LAMICTAL [Concomitant]
     Active Substance: LAMOTRIGINE
     Dosage: UNK

REACTIONS (1)
  - Diplopia [Unknown]
